FAERS Safety Report 7745742-5 (Version None)
Quarter: 2011Q3

REPORT INFORMATION
  Report Type: 
  Country: None (occurrence: None)
  Receive Date: 20110913
  Receipt Date: 20110909
  Transmission Date: 20111222
  Serious: Yes (Death, Other)
  Sender: FDA-Public Use
  Company Number: DE-BAYER-2011-084720

PATIENT
  Age: 60 Year
  Sex: Male

DRUGS (2)
  1. NEXAVAR [Suspect]
     Indication: MYELOPROLIFERATIVE DISORDER
     Dosage: 400 MG, BID
     Route: 048
  2. NEXAVAR [Suspect]
     Dosage: 400 MG, BID
     Route: 048

REACTIONS (3)
  - PANCYTOPENIA [None]
  - INFECTION [None]
  - MYELOPROLIFERATIVE DISORDER [None]
